FAERS Safety Report 17085694 (Version 1)
Quarter: 2019Q4

REPORT INFORMATION
  Report Type: Spontaneous
  Country: KW (occurrence: KW)
  Receive Date: 20191128
  Receipt Date: 20191128
  Transmission Date: 20200122
  Serious: Yes (Other)
  Sender: FDA-Public Use
  Company Number: KW-ALKEM LABORATORIES LIMITED-KW-ALKEM-2019-08598

PATIENT
  Age: 16 Year
  Sex: Female

DRUGS (5)
  1. FLUOXETINE [Suspect]
     Active Substance: FLUOXETINE HYDROCHLORIDE
     Dosage: 60 MILLIGRAM, QD
     Route: 065
  2. CYPROHEPTADINE. [Concomitant]
     Active Substance: CYPROHEPTADINE
     Indication: PRODUCT USED FOR UNKNOWN INDICATION
  3. QUETIAPINE FUMARATE. [Suspect]
     Active Substance: QUETIAPINE FUMARATE
     Indication: ANOREXIA NERVOSA
     Dosage: 300 MILLIGRAM, QD
     Route: 065
  4. FLUOXETINE [Suspect]
     Active Substance: FLUOXETINE HYDROCHLORIDE
     Indication: ANOREXIA NERVOSA
     Dosage: 40 MILLIGRAM, QD
     Route: 065
  5. OLANZAPINE. [Suspect]
     Active Substance: OLANZAPINE
     Indication: ANOREXIA NERVOSA
     Dosage: 10 MILLIGRAM, QD
     Route: 065

REACTIONS (4)
  - Disease progression [Recovering/Resolving]
  - Drug ineffective [Unknown]
  - Weight decreased [Recovering/Resolving]
  - Food refusal [Recovering/Resolving]
